FAERS Safety Report 24544965 (Version 1)
Quarter: 2024Q4

REPORT INFORMATION
  Report Type: Spontaneous
  Country: US (occurrence: None)
  Receive Date: 20241024
  Receipt Date: 20241024
  Transmission Date: 20250115
  Serious: Yes (Hospitalization)
  Sender: Public
  Company Number: None

PATIENT
  Age: 70 Year
  Sex: Female
  Weight: 80.2 kg

DRUGS (4)
  1. FEMARA [Suspect]
     Active Substance: LETROZOLE
  2. INSULIN GLARGINE [Concomitant]
  3. INSULIN LISPRO [Concomitant]
  4. METFORMIN [Concomitant]

REACTIONS (3)
  - Hyperglycaemia [None]
  - Device malfunction [None]
  - Urine ketone body present [None]

NARRATIVE: CASE EVENT DATE: 20240807
